FAERS Safety Report 12597706 (Version 2)
Quarter: 2016Q3

REPORT INFORMATION
  Report Type: Spontaneous
  Country: JP (occurrence: JP)
  Receive Date: 20160726
  Receipt Date: 20160808
  Transmission Date: 20161109
  Serious: Yes (Death, Hospitalization, Other)
  Sender: FDA-Public Use
  Company Number: JP-NAPPMUNDI-GBR-2016-0039323

PATIENT
  Age: 69 Year
  Sex: Male

DRUGS (3)
  1. CETUXIMAB [Suspect]
     Active Substance: CETUXIMAB
     Indication: METASTASES TO LUNG
  2. CETUXIMAB [Suspect]
     Active Substance: CETUXIMAB
     Indication: RECURRENT CANCER
     Dosage: UNK
     Route: 065
  3. OXYCONTIN [Suspect]
     Active Substance: OXYCODONE HYDROCHLORIDE
     Indication: CANCER PAIN
     Dosage: UNK
     Route: 048

REACTIONS (5)
  - Pneumatosis intestinalis [Recovering/Resolving]
  - Flatulence [Recovering/Resolving]
  - Constipation [Recovering/Resolving]
  - Cardio-respiratory arrest [Fatal]
  - Aspiration [Unknown]
